FAERS Safety Report 24397809 (Version 1)
Quarter: 2024Q4

REPORT INFORMATION
  Report Type: Spontaneous
  Country: PT (occurrence: PT)
  Receive Date: 20241004
  Receipt Date: 20241004
  Transmission Date: 20250115
  Serious: Yes (Hospitalization, Other)
  Sender: PHARMACEUTICAL ASSOC
  Company Number: PT-PAIPHARMA-2024-PT-000094

PATIENT
  Age: 6 Decade
  Sex: Female

DRUGS (4)
  1. LITHIUM [Suspect]
     Active Substance: LITHIUM
     Indication: Bipolar disorder
     Dosage: 800 MG DAILY
  2. CLONAZEPAM [Concomitant]
     Active Substance: CLONAZEPAM
     Dosage: 2 MG DAILY
  3. LORAZEPAM [Concomitant]
     Active Substance: LORAZEPAM
     Dosage: 5 MG DAILY
  4. QUETIAPINE [Concomitant]
     Active Substance: QUETIAPINE
     Dosage: 300 MG DAILY

REACTIONS (1)
  - Stress cardiomyopathy [Recovered/Resolved]
